FAERS Safety Report 10512200 (Version 1)
Quarter: 2014Q3

REPORT INFORMATION
  Report Type: Spontaneous
  Country: US (occurrence: None)
  Receive Date: 20140926
  Receipt Date: 20140926
  Transmission Date: 20150326
  Serious: No
  Sender: FDA-Public Use
  Company Number: 1000067852

PATIENT
  Age: 89 Year
  Sex: Male

DRUGS (5)
  1. METOPROLOL (METOPROLOL) (METOPROLOL) [Concomitant]
     Active Substance: METOPROLOL
  2. LINZESS [Suspect]
     Active Substance: LINACLOTIDE
     Indication: CONSTIPATION
     Route: 048
     Dates: start: 201405
  3. SOTALOL (SOTALOL) (SOTALOL) [Concomitant]
  4. SIMVASTATIN (SIMVASTATIN) (SIMVASTATIN) [Suspect]
     Active Substance: SIMVASTATIN
  5. AMLODIPINE [Concomitant]
     Active Substance: AMLODIPINE BESYLATE

REACTIONS (2)
  - Faeces discoloured [None]
  - Flatulence [None]

NARRATIVE: CASE EVENT DATE: 201405
